FAERS Safety Report 4775336-5 (Version None)
Quarter: 2005Q3

REPORT INFORMATION
  Report Type: 
  Country: None (occurrence: None)
  Receive Date: 20050922
  Receipt Date: 20050919
  Transmission Date: 20060218
  Serious: Yes (Life-Threatening)
  Sender: FDA-Public Use
  Company Number: DE-BOEHRINGER INGELHEIM PHARMACEUTICALS, INC.-2005-DE-03823DE

PATIENT
  Sex: Female
  Weight: 80 kg

DRUGS (3)
  1. AGGRENOX [Suspect]
     Indication: BRAIN STEM SYNDROME
     Route: 048
     Dates: start: 20041109, end: 20050215
  2. EUNERPAN [Concomitant]
     Route: 048
     Dates: start: 20041109
  3. BIFITERAL [Concomitant]
     Route: 048
     Dates: start: 20041109

REACTIONS (1)
  - HAEMOLYTIC ANAEMIA [None]
